FAERS Safety Report 8542423-5 (Version None)
Quarter: 2012Q3

REPORT INFORMATION
  Report Type: 
  Country: None (occurrence: None)
  Receive Date: 20120726
  Receipt Date: 20120717
  Transmission Date: 20120928
  Serious: Yes (Hospitalization)
  Sender: FDA-Public Use
  Company Number: US-JNJFOC-20120516796

PATIENT
  Sex: Female
  Weight: 40.82 kg

DRUGS (4)
  1. FENTANYL-100 [Suspect]
     Route: 062
     Dates: start: 20111201, end: 20120501
  2. THYROID TAB [Concomitant]
     Indication: HYPOTHYROIDISM
     Route: 048
  3. ADVIL [Suspect]
     Indication: PAIN
     Route: 048
     Dates: start: 20120501
  4. FENTANYL-100 [Suspect]
     Indication: ARTHRALGIA
     Dosage: STOPPED APPROXIMATELY ON 16-APR-2012
     Route: 062

REACTIONS (9)
  - NAUSEA [None]
  - APPLICATION SITE REACTION [None]
  - ARTHRALGIA [None]
  - JOINT SWELLING [None]
  - CONDITION AGGRAVATED [None]
  - PAIN [None]
  - TREATMENT NONCOMPLIANCE [None]
  - HEADACHE [None]
  - URINARY INCONTINENCE [None]
